FAERS Safety Report 11402087 (Version 1)
Quarter: 2015Q3

REPORT INFORMATION
  Report Type: Spontaneous
  Country: US (occurrence: None)
  Receive Date: 20150807
  Receipt Date: 20150807
  Transmission Date: 20151125
  Serious: Yes (Death)
  Sender: FDA-Public Use
  Company Number: 2015-LIT-ME-0046

PATIENT
  Age: 56 Year
  Sex: Female

DRUGS (1)
  1. METHROTREXATE (METHOTREXATE) N/A [Suspect]
     Active Substance: METHOTREXATE

REACTIONS (5)
  - Nausea [None]
  - Systemic sclerosis [None]
  - Oedema peripheral [None]
  - Skin tightness [None]
  - Fatigue [None]
